FAERS Safety Report 11272078 (Version 1)
Quarter: 2015Q3

REPORT INFORMATION
  Report Type: Spontaneous
  Country: US (occurrence: US)
  Receive Date: 20150715
  Receipt Date: 20150715
  Transmission Date: 20151125
  Serious: Yes (Other)
  Sender: FDA-Public Use
  Company Number: PHHY2015US081544

PATIENT
  Age: 62 Year
  Sex: Female

DRUGS (3)
  1. IMATINIB [Suspect]
     Active Substance: IMATINIB
     Indication: GASTROINTESTINAL STROMAL TUMOUR
     Route: 065
  2. IMATINIB [Suspect]
     Active Substance: IMATINIB
     Indication: METASTASES TO PERITONEUM
  3. IMATINIB [Suspect]
     Active Substance: IMATINIB
     Indication: METASTASES TO LIVER

REACTIONS (4)
  - HER-2 positive breast cancer [Unknown]
  - Second primary malignancy [Unknown]
  - Therapeutic response decreased [Unknown]
  - Oestrogen receptor positive breast cancer [Unknown]
